FAERS Safety Report 6254879-1 (Version None)
Quarter: 2009Q3

REPORT INFORMATION
  Report Type: 
  Country: None (occurrence: None)
  Receive Date: 20090702
  Receipt Date: 20090617
  Transmission Date: 20100115
  Serious: Yes (Disabling)
  Sender: FDA-Public Use
  Company Number: NZ-AVENTIS-200916450GDDC

PATIENT
  Age: 80 Year
  Sex: Female

DRUGS (5)
  1. LEFLUNOMIDE [Suspect]
     Dates: start: 20050801, end: 20060701
  2. OMEPRAZOLE [Concomitant]
  3. PREDNISOLONE [Concomitant]
  4. ETIDRONATE DISODIUM [Concomitant]
  5. SULFASALAZINE [Concomitant]

REACTIONS (2)
  - DEAFNESS [None]
  - NEUROPATHY PERIPHERAL [None]
